FAERS Safety Report 22814562 (Version 2)
Quarter: 2024Q2

REPORT INFORMATION
  Report Type: Spontaneous
  Country: ES (occurrence: ES)
  Receive Date: 20230811
  Receipt Date: 20240506
  Transmission Date: 20240715
  Serious: Yes (Other)
  Sender: FDA-Public Use
  Company Number: ES-OTSUKA-2023_020997

PATIENT
  Age: 70 Year
  Sex: Female

DRUGS (4)
  1. ABILIFY [Suspect]
     Active Substance: ARIPIPRAZOLE
     Indication: Bipolar disorder
     Dosage: 5 MG
     Route: 048
  2. ABILIFY [Suspect]
     Active Substance: ARIPIPRAZOLE
     Dosage: 60 MG
     Route: 048
  3. COLCHICINE [Concomitant]
     Active Substance: COLCHICINE
     Indication: Product used for unknown indication
     Dosage: UNK
     Route: 065
  4. CAPTOPRIL [Concomitant]
     Active Substance: CAPTOPRIL
     Indication: Product used for unknown indication
     Dosage: UNK
     Route: 065

REACTIONS (12)
  - Gangrene [Unknown]
  - Suicidal ideation [Unknown]
  - Incoherent [Unknown]
  - Blood uric acid increased [Unknown]
  - Nervousness [Unknown]
  - Drooling [Unknown]
  - Muscle rigidity [Unknown]
  - Salivary hypersecretion [Unknown]
  - Urinary incontinence [Unknown]
  - Overdose [Unknown]
  - Wrong technique in product usage process [Unknown]
  - Underdose [Unknown]
